APPROVED DRUG PRODUCT: NORGESTREL AND ETHINYL ESTRADIOL
Active Ingredient: ETHINYL ESTRADIOL; NORGESTREL
Strength: 0.03MG;0.3MG
Dosage Form/Route: TABLET;ORAL-28
Application: A201828 | Product #001
Applicant: MYLAN LABORATORIES LTD
Approved: Jun 21, 2016 | RLD: No | RS: No | Type: DISCN